FAERS Safety Report 15863783 (Version 1)
Quarter: 2019Q1

REPORT INFORMATION
  Report Type: Spontaneous
  Country: US (occurrence: US)
  Receive Date: 20190124
  Receipt Date: 20190124
  Transmission Date: 20190417
  Serious: No
  Sender: FDA-Public Use
  Company Number: US-ENDO PHARMACEUTICALS INC-2018-024019

PATIENT
  Sex: Male
  Weight: 99.77 kg

DRUGS (4)
  1. OXYCODONE HYDROCHLORIDE, ACETAMINOPHEN [Concomitant]
     Active Substance: ACETAMINOPHEN\OXYCODONE HYDROCHLORIDE
     Indication: BACK PAIN
  2. OXYCODONE HYDROCHLORIDE, ACETAMINOPHEN [Concomitant]
     Active Substance: ACETAMINOPHEN\OXYCODONE HYDROCHLORIDE
     Indication: INTERVERTEBRAL DISC PROTRUSION
  3. FORTESTA [Suspect]
     Active Substance: TESTOSTERONE
     Indication: BLOOD TESTOSTERONE DECREASED
     Dosage: 7 PUMPS, DAILY, APPLIED TO THE THIGHS
     Route: 061
  4. FORTESTA [Suspect]
     Active Substance: TESTOSTERONE
     Dosage: 4 PUMPS, DAILY, APPLIED TO THE THIGHS
     Route: 061
     Dates: start: 2016

REACTIONS (4)
  - Diarrhoea [Unknown]
  - Influenza like illness [Unknown]
  - Rhinorrhoea [Unknown]
  - Therapy cessation [Recovered/Resolved]
